FAERS Safety Report 10558360 (Version 1)
Quarter: 2014Q4

REPORT INFORMATION
  Report Type: Spontaneous
  Country: US (occurrence: US)
  Receive Date: 20141031
  Receipt Date: 20141031
  Transmission Date: 20150529
  Serious: No
  Sender: FDA-Public Use
  Company Number: US-BAYER-2014-158854

PATIENT
  Age: 66 Year
  Sex: Male

DRUGS (1)
  1. XOFIGO [Suspect]
     Active Substance: RADIUM RA-223 DICHLORIDE
     Indication: PROSTATE CANCER
     Dosage: UNK
     Dates: end: 20140925

REACTIONS (3)
  - Glycosylated haemoglobin increased [None]
  - Blood cholesterol increased [None]
  - Drug dose omission [None]

NARRATIVE: CASE EVENT DATE: 201410
